FAERS Safety Report 19315315 (Version 2)
Quarter: 2021Q2

REPORT INFORMATION
  Report Type: Spontaneous
  Country: JP (occurrence: JP)
  Receive Date: 20210527
  Receipt Date: 20210614
  Transmission Date: 20210717
  Serious: Yes (Other)
  Sender: FDA-Public Use
  Company Number: JP-ASTELLAS-2021JP008448

PATIENT
  Age: 92 Year
  Sex: Female

DRUGS (6)
  1. GORINSAN [HERBALS] [Suspect]
     Active Substance: HERBALS
     Indication: CYSTITIS-LIKE SYMPTOM
     Dosage: UNK UNK, UNKNOWN FREQ.
     Route: 048
     Dates: start: 20200821, end: 20201012
  2. BETANIS [Suspect]
     Active Substance: MIRABEGRON
     Indication: POLLAKIURIA
     Route: 048
     Dates: start: 20200801, end: 20201225
  3. LASIX [Suspect]
     Active Substance: FUROSEMIDE
     Indication: PRODUCT USED FOR UNKNOWN INDICATION
     Dosage: UNK UNK, UNKNOWN FREQ.
     Route: 048
     Dates: end: 20200911
  4. BETANIS [Suspect]
     Active Substance: MIRABEGRON
     Indication: HYPERTONIC BLADDER
  5. PROPIVERINE HYDROCHLORIDE [Concomitant]
     Active Substance: PROPIVERINE HYDROCHLORIDE
     Indication: POLLAKIURIA
     Dosage: UNK UNK, UNKNOWN FREQ.
     Route: 048
  6. LASIX [Suspect]
     Active Substance: FUROSEMIDE
     Dosage: UNK UNK, UNKNOWN FREQ.
     Route: 048
     Dates: start: 20201010

REACTIONS (5)
  - Urine abnormality [Not Recovered/Not Resolved]
  - Oedema [Recovered/Resolved]
  - Blood potassium decreased [Unknown]
  - Cystitis-like symptom [Recovered/Resolved]
  - Blood pressure increased [Recovering/Resolving]

NARRATIVE: CASE EVENT DATE: 20200807
